FAERS Safety Report 8181963-8 (Version None)
Quarter: 2012Q1

REPORT INFORMATION
  Report Type: 
  Country: None (occurrence: None)
  Receive Date: 20120302
  Receipt Date: 20120221
  Transmission Date: 20120608
  Serious: Yes (Hospitalization, Other)
  Sender: FDA-Public Use
  Company Number: PHEH2008US03144

PATIENT
  Sex: Female

DRUGS (43)
  1. FENTANYL [Concomitant]
  2. LORTAB [Concomitant]
  3. MUCINEX [Concomitant]
  4. PROTONIX [Concomitant]
  5. TIMENTIN [Concomitant]
  6. ARANESP [Concomitant]
  7. CELEXA [Concomitant]
  8. PREMARIN [Concomitant]
  9. POTASSIUM CHLORIDE [Concomitant]
  10. WARFARIN SODIUM [Concomitant]
  11. DECADRON [Concomitant]
     Dosage: UNK UKN, UNK
     Dates: start: 20011101
  12. PREDNISONE TAB [Concomitant]
  13. VERSED [Concomitant]
  14. RELAFEN [Concomitant]
  15. ZOFRAN [Concomitant]
  16. MULTIVITAMIN ^LAPPE^ [Concomitant]
  17. RADIATION TREATMENT [Concomitant]
  18. AUGMENTIN '125' [Concomitant]
  19. CALCIUM [Concomitant]
     Dosage: UNK
  20. NAPROXEN [Concomitant]
     Dosage: 400 MG, BID
  21. NEURONTIN [Concomitant]
  22. DUONEB [Concomitant]
  23. BENADRYL ^WARNER-LAMBERT^               /USA/ [Concomitant]
  24. CLINDAMYCIN [Concomitant]
     Dosage: UNK
  25. ZOMETA [Suspect]
     Dosage: 4 MG IN 100 ML NS
  26. ALBUTEROL [Concomitant]
     Dosage: UNK UKN, UNK
  27. ROCEPHIN [Concomitant]
  28. AREDIA [Suspect]
     Dosage: 90 MG IN 500 ML NS, QMO
     Dates: start: 20011101, end: 20070401
  29. COZAAR [Concomitant]
     Dosage: 50 MG, DAILY
  30. IPRATROPIUM BROMIDE [Concomitant]
     Dosage: UNK UKN, UNK
  31. HYZAAR [Concomitant]
  32. HYDROCHLOROTHIAZIDE [Concomitant]
  33. PERCOCET [Concomitant]
  34. HYDROCODONE BITARTRATE [Concomitant]
  35. ALKERAN [Concomitant]
     Dosage: UNK UKN, UNK
     Dates: start: 20011101
  36. VELCADE [Concomitant]
  37. MIRALAX [Concomitant]
  38. LACTULOSE [Concomitant]
  39. CEREFOLIN [Concomitant]
  40. DURAGESIC-100 [Concomitant]
  41. IBUPROFEN TABLETS [Concomitant]
  42. VITAMIN D [Concomitant]
  43. ZOLOFT [Concomitant]

REACTIONS (94)
  - OSTEOPOROSIS [None]
  - DENTAL NECROSIS [None]
  - DENTAL PROSTHESIS USER [None]
  - MULTIPLE MYELOMA [None]
  - SINUS TACHYCARDIA [None]
  - X-RAY ABNORMAL [None]
  - BURSITIS [None]
  - PLEURAL EFFUSION [None]
  - CHILLS [None]
  - DYSPNOEA EXERTIONAL [None]
  - BACK PAIN [None]
  - GINGIVAL SWELLING [None]
  - PLASMACYTOMA [None]
  - COUGH [None]
  - MITRAL VALVE DISEASE [None]
  - PAIN IN EXTREMITY [None]
  - INSOMNIA [None]
  - DIARRHOEA [None]
  - LUNG INFECTION PSEUDOMONAL [None]
  - SPINAL COMPRESSION FRACTURE [None]
  - OSTEOARTHRITIS [None]
  - EMOTIONAL DISTRESS [None]
  - INFLAMMATION [None]
  - CORONARY ARTERY DISEASE [None]
  - ARTERIOSCLEROSIS [None]
  - HYPERTHYROIDISM [None]
  - HERPES ZOSTER [None]
  - DECREASED APPETITE [None]
  - PAIN [None]
  - INFECTION [None]
  - OSTEOLYSIS [None]
  - TOOTHACHE [None]
  - HYPONATRAEMIA [None]
  - MIGRAINE [None]
  - NEURALGIA [None]
  - WEIGHT DECREASED [None]
  - CONSTIPATION [None]
  - OSTEOPENIA [None]
  - SCAR [None]
  - ORAL DISCHARGE [None]
  - ABSCESS JAW [None]
  - DIVERTICULUM [None]
  - MUSCULOSKELETAL CHEST PAIN [None]
  - NEUTROPENIA [None]
  - HAEMORRHOIDS [None]
  - HOT FLUSH [None]
  - ASTHENIA [None]
  - LUNG CONSOLIDATION [None]
  - BRONCHIECTASIS [None]
  - INTERVERTEBRAL DISC PROTRUSION [None]
  - CARDIOMEGALY [None]
  - MYCOBACTERIUM AVIUM COMPLEX INFECTION [None]
  - SENSITIVITY OF TEETH [None]
  - JAW DISORDER [None]
  - ARTHRALGIA [None]
  - VERTIGO [None]
  - HAEMATOCHEZIA [None]
  - SPONDYLOLISTHESIS [None]
  - HYPERHIDROSIS [None]
  - ATELECTASIS [None]
  - CHEST PAIN [None]
  - PYREXIA [None]
  - TOTAL LUNG CAPACITY DECREASED [None]
  - EMPHYSEMA [None]
  - LUMBAR SPINAL STENOSIS [None]
  - VERTEBRAL FORAMINAL STENOSIS [None]
  - OSTEONECROSIS OF JAW [None]
  - INJURY [None]
  - ANXIETY [None]
  - DENTAL DISCOMFORT [None]
  - WHITE BLOOD CELL COUNT DECREASED [None]
  - COLITIS [None]
  - GROIN PAIN [None]
  - INFLUENZA [None]
  - EMPYEMA [None]
  - PLEURISY [None]
  - LYMPHOCYTIC INFILTRATION [None]
  - GRANULOMA [None]
  - SPINAL OSTEOARTHRITIS [None]
  - EXOSTOSIS [None]
  - SYNOVIAL CYST [None]
  - RECTAL HAEMORRHAGE [None]
  - PHYSICAL DISABILITY [None]
  - BONE LESION [None]
  - ANAEMIA OF CHRONIC DISEASE [None]
  - SOFT TISSUE MASS [None]
  - BRONCHITIS [None]
  - LEUKOPENIA [None]
  - ORTHOSTATIC HYPOTENSION [None]
  - STAPHYLOCOCCAL INFECTION [None]
  - FATIGUE [None]
  - OEDEMA [None]
  - NERVE INJURY [None]
  - FEELING ABNORMAL [None]
